FAERS Safety Report 18247933 (Version 1)
Quarter: 2020Q3

REPORT INFORMATION
  Report Type: Spontaneous
  Country: IT (occurrence: IT)
  Receive Date: 20200909
  Receipt Date: 20200909
  Transmission Date: 20201103
  Serious: Yes (Hospitalization)
  Sender: FDA-Public Use
  Company Number: IT-MYLANLABS-2020M1076384

PATIENT
  Age: 61 Year
  Sex: Female

DRUGS (1)
  1. ZOLPIDEM [Suspect]
     Active Substance: ZOLPIDEM TARTRATE
     Indication: INSOMNIA
     Dosage: 80 GTT DROPS, PRN
     Route: 048
     Dates: start: 20180107, end: 20180107

REACTIONS (5)
  - Fall [Recovering/Resolving]
  - Intentional self-injury [Recovering/Resolving]
  - Depression [Recovering/Resolving]
  - Drug abuse [Recovering/Resolving]
  - Wound [Recovering/Resolving]

NARRATIVE: CASE EVENT DATE: 20180107
